FAERS Safety Report 4555994-0 (Version None)
Quarter: 2005Q1

REPORT INFORMATION
  Report Type: 
  Country: None (occurrence: None)
  Receive Date: 20050119
  Receipt Date: 20041209
  Transmission Date: 20050727
  Serious: Yes (Hospitalization)
  Sender: FDA-Public Use
  Company Number: PHBS2004ES16556

PATIENT
  Age: 54 Year
  Sex: Male

DRUGS (2)
  1. VALPROIC ACID [Concomitant]
     Indication: EPILEPSY
     Route: 065
  2. CARBAMAZEPINE [Suspect]
     Indication: EPILEPSY
     Dosage: 200 MG, Q8H
     Route: 065

REACTIONS (5)
  - ABDOMINAL PAIN [None]
  - BOWEL SOUNDS ABNORMAL [None]
  - COLITIS [None]
  - DIARRHOEA [None]
  - WEIGHT DECREASED [None]
